FAERS Safety Report 9512264 (Version 1)
Quarter: 2013Q3

REPORT INFORMATION
  Report Type: Spontaneous
  Country: GB (occurrence: GB)
  Receive Date: 20130910
  Receipt Date: 20130910
  Transmission Date: 20140515
  Serious: Yes (Hospitalization)
  Sender: FDA-Public Use
  Company Number: GB-BAUSCH-BL-2013-004882

PATIENT
  Age: 7 Year
  Sex: Male

DRUGS (11)
  1. SALBUTAMOL [Suspect]
     Dosage: 15 UG/KG; ONCE; INTRAVENOUS BOLUS
     Route: 040
  2. SALBUTAMOL [Suspect]
     Dosage: 2 UG/KG; PER MINUTE; INTRAVENOUS DRIP
     Route: 041
  3. BECLOMETASONE DIPROPIONATE [Concomitant]
     Indication: ASTHMA
     Dosage: 100 MICROGRAM; TWICE DAILY; INHALATION
  4. SALBUTAMOL [Concomitant]
     Indication: ASTHMA
     Dosage: 100-500 MICROGRAM; AS REQUIRED; INHALATION
  5. SALBUTAMOL [Concomitant]
     Dosage: OROPHANRINGEAL
     Route: 049
  6. IPRATROPIUM [Concomitant]
     Dosage: OROPHANRINGEAL
     Route: 049
  7. PREDNISOLONE [Concomitant]
     Dosage: ORAL
     Route: 048
  8. OXYGEN [Concomitant]
     Dosage: 8 LITERS; PER MINUTE; FACEMASK
  9. OXYGEN [Concomitant]
     Dosage: 3 LITRES; PER MINUTE; FACEMASK
  10. AMINOPHYLLINE [Concomitant]
     Dosage: 5 MG/KG; ONCE; INTRAVENOUS
  11. AMINOPHYLLINE [Concomitant]
     Dosage: 1 MG/KG; PER HOUR; INTRAVENOUS DRIP
     Route: 041

REACTIONS (1)
  - Lactic acidosis [Recovered/Resolved]
